FAERS Safety Report 11363979 (Version 1)
Quarter: 2015Q3

REPORT INFORMATION
  Report Type: Other
  Country: CA (occurrence: CA)
  Receive Date: 20150811
  Receipt Date: 20150811
  Transmission Date: 20151125
  Serious: Yes (Hospitalization, Other)
  Sender: FDA-Public Use
  Company Number: CA-ACTELION-A-CH2015-122193

PATIENT
  Age: 4 Year
  Sex: Female
  Weight: 12 kg

DRUGS (4)
  1. CARIPUL [Suspect]
     Active Substance: EPOPROSTENOL
     Indication: PULMONARY ARTERIAL HYPERTENSION
     Route: 042
  2. SILDENAFIL. [Concomitant]
     Active Substance: SILDENAFIL
  3. OXYGEN. [Concomitant]
     Active Substance: OXYGEN
  4. TRACLEER [Suspect]
     Active Substance: BOSENTAN
     Indication: PULMONARY ARTERIAL HYPERTENSION
     Route: 048

REACTIONS (18)
  - Transfusion [Unknown]
  - Extracorporeal membrane oxygenation [Unknown]
  - Platelet transfusion [Unknown]
  - Pulmonary oedema [Unknown]
  - Transplant dysfunction [Unknown]
  - Right ventricular failure [Unknown]
  - Chest X-ray abnormal [Unknown]
  - Packed red blood cell transfusion [Unknown]
  - Hypoxia [Recovered/Resolved]
  - Enterococcus test positive [Unknown]
  - Heart and lung transplant [Recovered/Resolved]
  - Hypercapnia [Recovered/Resolved]
  - Staphylococcus test positive [Unknown]
  - Procedural haemorrhage [Unknown]
  - Concomitant disease progression [Unknown]
  - Cardiac arrest [Unknown]
  - Cardiopulmonary bypass [Recovered/Resolved]
  - Bradycardia [Unknown]
